FAERS Safety Report 13501488 (Version 4)
Quarter: 2019Q1

REPORT INFORMATION
  Report Type: Report from Study
  Country: US (occurrence: US)
  Receive Date: 20170501
  Receipt Date: 20190208
  Transmission Date: 20190417
  Serious: Yes (Other)
  Sender: FDA-Public Use
  Company Number: US-ROCHE-1851650

PATIENT
  Sex: Male
  Weight: 84.9 kg

DRUGS (10)
  1. ESBRIET [Suspect]
     Active Substance: PIRFENIDONE
     Dosage: 3 CAPSULES 3 TIMES PER DAY
     Route: 048
     Dates: start: 20151102
  2. CITALOPRAM [Concomitant]
     Active Substance: CITALOPRAM HYDROBROMIDE
  3. ESBRIET [Suspect]
     Active Substance: PIRFENIDONE
     Route: 048
     Dates: start: 20160611
  4. ALPRAZOLAM. [Concomitant]
     Active Substance: ALPRAZOLAM
  5. DILTIAZEM. [Concomitant]
     Active Substance: DILTIAZEM
  6. ASPIRIN. [Concomitant]
     Active Substance: ASPIRIN
  7. ESBRIET [Suspect]
     Active Substance: PIRFENIDONE
     Indication: IDIOPATHIC PULMONARY FIBROSIS
     Route: 048
     Dates: start: 20170608
  8. SIMVASTATIN. [Concomitant]
     Active Substance: SIMVASTATIN
  9. PREDNISONE. [Concomitant]
     Active Substance: PREDNISONE
  10. ASMANEX [Concomitant]
     Active Substance: MOMETASONE FUROATE

REACTIONS (18)
  - Extra dose administered [Unknown]
  - Hypoaesthesia [Unknown]
  - Blood pressure decreased [Unknown]
  - Feeling abnormal [Unknown]
  - Sneezing [Unknown]
  - Dizziness [Recovered/Resolved with Sequelae]
  - Oxygen saturation decreased [Unknown]
  - Lung neoplasm malignant [Unknown]
  - Oxygen consumption increased [Unknown]
  - Rhinorrhoea [Unknown]
  - Blood pressure increased [Unknown]
  - Headache [Unknown]
  - Paraesthesia [Unknown]
  - Gastric disorder [Unknown]
  - Decreased appetite [Unknown]
  - Medication error [Unknown]
  - Nasal congestion [Unknown]
  - Infection [Unknown]
